FAERS Safety Report 23939984 (Version 1)
Quarter: 2024Q2

REPORT INFORMATION
  Report Type: Spontaneous
  Country: US (occurrence: US)
  Receive Date: 20240605
  Receipt Date: 20240605
  Transmission Date: 20240716
  Serious: No
  Sender: FDA-Public Use
  Company Number: US-CADILA HEALTHCARE LIMITED-US-ZYDUS-100260

PATIENT

DRUGS (1)
  1. DOXAZOSIN [Suspect]
     Active Substance: DOXAZOSIN MESYLATE
     Indication: Product use in unapproved indication
     Dosage: 2 MILLIGRAM
     Route: 065

REACTIONS (3)
  - Headache [Unknown]
  - Poor quality sleep [Unknown]
  - Product substitution issue [Unknown]
